FAERS Safety Report 12787716 (Version 1)
Quarter: 2016Q3

REPORT INFORMATION
  Report Type: Spontaneous
  Country: US (occurrence: US)
  Receive Date: 20160927
  Receipt Date: 20160927
  Transmission Date: 20161109
  Serious: Yes (Disabling)
  Sender: FDA-Public Use
  Company Number: None

PATIENT
  Age: 49 Year
  Sex: Female
  Weight: 77.4 kg

DRUGS (2)
  1. HYOSCYAMINE 0.125MG SUBLINGUAL [Suspect]
     Active Substance: HYOSCYAMINE
     Indication: IRRITABLE BOWEL SYNDROME
     Route: 060
     Dates: start: 20160904, end: 20160904
  2. HYDROCHLOROQUINE [Concomitant]
     Active Substance: HYDROXYCHLOROQUINE SULFATE

REACTIONS (5)
  - Vision blurred [None]
  - Impaired driving ability [None]
  - Contusion [None]
  - Reading disorder [None]
  - Dizziness [None]

NARRATIVE: CASE EVENT DATE: 20160904
